FAERS Safety Report 11287948 (Version 2)
Quarter: 2015Q3

REPORT INFORMATION
  Report Type: Report from Study
  Country: US (occurrence: US)
  Receive Date: 20150721
  Receipt Date: 20150825
  Transmission Date: 20151125
  Serious: Yes (Other)
  Sender: FDA-Public Use
  Company Number: US-GILEAD-2015-0163880

PATIENT
  Age: 83 Year
  Sex: Female

DRUGS (3)
  1. AMBRISENTAN [Suspect]
     Active Substance: AMBRISENTAN
     Indication: INTERSTITIAL LUNG DISEASE
  2. AMBRISENTAN [Suspect]
     Active Substance: AMBRISENTAN
     Indication: PULMONARY HYPERTENSION
     Dosage: 5 MG, QD
     Route: 065
     Dates: start: 20130520
  3. SILDENAFIL. [Concomitant]
     Active Substance: SILDENAFIL

REACTIONS (5)
  - Pyrexia [Unknown]
  - Hot flush [Unknown]
  - Blood pressure systolic increased [Unknown]
  - Feeling abnormal [Unknown]
  - Flushing [Unknown]
